FAERS Safety Report 20123098 (Version 1)
Quarter: 2021Q4

REPORT INFORMATION
  Report Type: Spontaneous
  Country: US (occurrence: US)
  Receive Date: 20211129
  Receipt Date: 20211129
  Transmission Date: 20220303
  Serious: Yes (Death, Hospitalization)
  Sender: FDA-Public Use
  Company Number: US-JNJFOC-20211138874

PATIENT
  Age: 19 Year
  Sex: Female
  Weight: 70 kg

DRUGS (2)
  1. TYLENOL EXTRA STRENGTH [Suspect]
     Active Substance: ACETAMINOPHEN
     Indication: Suicide attempt
     Dosage: ACETAMINOPHEN 500 MG AT A DOSE OF 2500 MG
     Route: 048
     Dates: start: 20010111, end: 20010111
  2. TYLENOL PM [Suspect]
     Active Substance: ACETAMINOPHEN\DIPHENHYDRAMINE
     Indication: Suicide attempt
     Dosage: ACETAMINOPHEN 500 MG/ DIPHENHYDRAMINE HYDROCHLORIDE 25 MG AT A DOSE OF  ACETAMINOPHEN 6250 MG/ DIPHE
     Route: 048
     Dates: start: 20010111, end: 20010111

REACTIONS (8)
  - Completed suicide [Fatal]
  - Arrhythmia [Fatal]
  - Chest X-ray abnormal [Fatal]
  - Acute hepatic failure [Fatal]
  - Acute kidney injury [Fatal]
  - Multiple organ dysfunction syndrome [Fatal]
  - Brain oedema [Fatal]
  - Intentional overdose [Fatal]

NARRATIVE: CASE EVENT DATE: 20010114
